FAERS Safety Report 10153273 (Version 2)
Quarter: 2019Q3

REPORT INFORMATION
  Report Type: Spontaneous
  Country: US (occurrence: US)
  Receive Date: 20140505
  Receipt Date: 20190705
  Transmission Date: 20191004
  Serious: Yes (Other)
  Sender: FDA-Public Use
  Company Number: US-PFIZER INC-2014119485

PATIENT
  Age: 59 Year
  Sex: Female
  Weight: 62.6 kg

DRUGS (3)
  1. LYRICA [Suspect]
     Active Substance: PREGABALIN
     Dosage: 150 MG, 4X/DAY
     Route: 048
     Dates: start: 20131211
  2. PERCOCET [Concomitant]
     Active Substance: ACETAMINOPHEN\OXYCODONE HYDROCHLORIDE
     Dosage: 5MG OXYCODONE HYDROCHLORIDE, 325MG PARACETAMOL (1 TAB BY MOUTH EVERY 4 HOURS AS NEEDED)
     Route: 048
     Dates: start: 20131211
  3. LEVAQUIN [Concomitant]
     Active Substance: LEVOFLOXACIN
     Dosage: 250 MG, DAILY
     Route: 048
     Dates: start: 20131211

REACTIONS (8)
  - Neuralgia [Unknown]
  - Off label use [Unknown]
  - Arnold-Chiari malformation [Unknown]
  - Eye disorder [Unknown]
  - Syringomyelia [Unknown]
  - Cystitis [Unknown]
  - Synovial cyst [Unknown]
  - Eyelid pain [Unknown]
